FAERS Safety Report 19944927 (Version 1)
Quarter: 2021Q4

REPORT INFORMATION
  Report Type: Spontaneous
  Country: US (occurrence: US)
  Receive Date: 20211012
  Receipt Date: 20211012
  Transmission Date: 20220304
  Serious: Yes (Hospitalization, Other)
  Sender: FDA-Public Use
  Company Number: US-MLMSERVICE-20210923-3124970-1

PATIENT
  Age: 64 Year
  Sex: Male

DRUGS (11)
  1. DOXYCYCLINE HYCLATE [Suspect]
     Active Substance: DOXYCYCLINE HYCLATE
     Indication: Antibiotic prophylaxis
     Dosage: UNK
  2. DOXYCYCLINE HYCLATE [Suspect]
     Active Substance: DOXYCYCLINE HYCLATE
     Indication: COVID-19
  3. CEFTRIAXONE [Suspect]
     Active Substance: CEFTRIAXONE
     Indication: COVID-19
     Dosage: UNK
  4. CEFTRIAXONE [Suspect]
     Active Substance: CEFTRIAXONE
     Indication: Antibiotic prophylaxis
  5. REMDESIVIR [Suspect]
     Active Substance: REMDESIVIR
     Indication: COVID-19
     Dosage: UNK
  6. REMDESIVIR [Suspect]
     Active Substance: REMDESIVIR
     Indication: Antibiotic prophylaxis
  7. HEPARIN [Concomitant]
     Active Substance: HEPARIN SODIUM
     Indication: Acute myocardial infarction
     Dosage: UNK
     Route: 041
  8. CLOPIDOGREL [Concomitant]
     Active Substance: CLOPIDOGREL BISULFATE
     Indication: Acute myocardial infarction
     Dosage: UNK
  9. ASPIRIN [Concomitant]
     Active Substance: ASPIRIN
     Indication: Acute myocardial infarction
     Dosage: UNK
  10. HYDROXYCHLOROQUINE [Concomitant]
     Active Substance: HYDROXYCHLOROQUINE
     Indication: Antibiotic prophylaxis
     Dosage: UNK
  11. HYDROXYCHLOROQUINE [Concomitant]
     Active Substance: HYDROXYCHLOROQUINE
     Indication: COVID-19

REACTIONS (1)
  - Renal impairment [Unknown]
